FAERS Safety Report 9145826 (Version 2)
Quarter: 2013Q1

REPORT INFORMATION
  Report Type: Report from Study
  Country: CA (occurrence: CA)
  Receive Date: 20130307
  Receipt Date: 20130315
  Transmission Date: 20140127
  Serious: Yes (Hospitalization, Other)
  Sender: FDA-Public Use
  Company Number: PHHY2013CA022065

PATIENT
  Sex: Female

DRUGS (4)
  1. CLOZARIL [Suspect]
     Indication: SCHIZOPHRENIA
     Dosage: UNK UKN, UNK
     Dates: start: 20050324
  2. CLOZARIL [Suspect]
     Dosage: 200 MG, UNK
     Dates: end: 201302
  3. SEROQUEL [Concomitant]
     Dosage: 250 MG, UNK
  4. EPIAL [Concomitant]
     Dosage: 500 MG, UNK

REACTIONS (2)
  - Cardiotoxicity [Recovered/Resolved]
  - Electrocardiogram QT prolonged [Recovered/Resolved]
